FAERS Safety Report 15247469 (Version 1)
Quarter: 2018Q3

REPORT INFORMATION
  Report Type: Spontaneous
  Country: DE (occurrence: DE)
  Receive Date: 20180807
  Receipt Date: 20180807
  Transmission Date: 20181010
  Serious: No
  Sender: FDA-Public Use
  Company Number: DE-LUPIN PHARMACEUTICALS INC.-2018-02198

PATIENT

DRUGS (1)
  1. LEVETIRACETAM?HORMOSAN 750 MG FILMTABLETTEN [Suspect]
     Active Substance: LEVETIRACETAM
     Dosage: UNK
     Route: 065

REACTIONS (2)
  - Incorrect route of drug administration [Unknown]
  - No adverse event [Unknown]
